FAERS Safety Report 21945278 (Version 1)
Quarter: 2023Q1

REPORT INFORMATION
  Report Type: Spontaneous
  Country: US (occurrence: US)
  Receive Date: 20230202
  Receipt Date: 20230202
  Transmission Date: 20230418
  Serious: Yes (Hospitalization, Other)
  Sender: FDA-Public Use
  Company Number: US-ELI_LILLY_AND_COMPANY-US202301009837

PATIENT
  Sex: Female

DRUGS (3)
  1. GEMZAR [Suspect]
     Active Substance: GEMCITABINE HYDROCHLORIDE
     Indication: Ovarian cancer
     Dosage: UNK, UNKNOWN
     Route: 065
  2. IBRANCE [Suspect]
     Active Substance: PALBOCICLIB
     Indication: Ovarian cancer
     Dosage: 75 MG, UNKNOWN
     Route: 065
  3. SODIUM CHLORIDE [Concomitant]
     Active Substance: SODIUM CHLORIDE
     Dosage: UNK, DAILY
     Route: 065

REACTIONS (5)
  - Seizure [Unknown]
  - Blood pressure increased [Unknown]
  - Full blood count decreased [Unknown]
  - Weight decreased [Unknown]
  - Syncope [Unknown]
